FAERS Safety Report 12137849 (Version 1)
Quarter: 2016Q1

REPORT INFORMATION
  Report Type: Spontaneous
  Country: CH (occurrence: CH)
  Receive Date: 20160302
  Receipt Date: 20160302
  Transmission Date: 20160526
  Serious: Yes (Hospitalization)
  Sender: FDA-Public Use
  Company Number: CH-PFIZER INC-2016100812

PATIENT
  Age: 36 Year
  Sex: Male

DRUGS (2)
  1. NALMEFENE [Suspect]
     Active Substance: NALMEFENE
     Dosage: UNK
  2. FENTANYL. [Suspect]
     Active Substance: FENTANYL
     Dosage: UNK

REACTIONS (1)
  - Drug withdrawal syndrome [Recovering/Resolving]
